FAERS Safety Report 4422423-7 (Version None)
Quarter: 2004Q3

REPORT INFORMATION
  Report Type: 
  Country: None (occurrence: None)
  Receive Date: 20040810
  Receipt Date: 20040802
  Transmission Date: 20050211
  Serious: Yes (Other)
  Sender: FDA-Public Use
  Company Number: PHBS2004IN10293

PATIENT
  Age: 35 Year
  Sex: Male

DRUGS (5)
  1. MYFORTIC [Suspect]
     Indication: RENAL TRANSPLANT
     Dosage: 720 MG, BID
     Route: 048
     Dates: start: 20040707, end: 20040716
  2. CYCLOSPORINE [Concomitant]
  3. PREDNISOLONE [Concomitant]
  4. PANTOPRAZOLE [Concomitant]
  5. NIFEDIPINE [Concomitant]

REACTIONS (3)
  - ANOREXIA [None]
  - HEPATIC ENZYME INCREASED [None]
  - JAUNDICE [None]
